FAERS Safety Report 11877910 (Version 1)
Quarter: 2015Q4

REPORT INFORMATION
  Report Type: Spontaneous
  Country: US (occurrence: US)
  Receive Date: 20151230
  Receipt Date: 20151230
  Transmission Date: 20160305
  Serious: Yes (Death, Hospitalization)
  Sender: FDA-Public Use
  Company Number: US-PFIZER INC-2015459767

PATIENT
  Age: 66 Year
  Sex: Female
  Weight: 78.93 kg

DRUGS (3)
  1. AROMASIN [Concomitant]
     Active Substance: EXEMESTANE
     Indication: BREAST CANCER
     Dosage: 25 MG, 1X/DAY
     Route: 048
  2. IBRANCE [Suspect]
     Active Substance: PALBOCICLIB
     Indication: BREAST CANCER METASTATIC
     Dosage: 75 MG, DAILY (21 DAYS ON, 7 DAYS OFF)
     Dates: start: 2015, end: 201511
  3. CITRACAL + D [Concomitant]
     Active Substance: CALCIUM CITRATE\VITAMIN D

REACTIONS (3)
  - Lower limb fracture [Unknown]
  - Swelling [Unknown]
  - Death [Fatal]

NARRATIVE: CASE EVENT DATE: 20151119
